FAERS Safety Report 13933378 (Version 2)
Quarter: 2019Q1

REPORT INFORMATION
  Report Type: Report from Study
  Country: TN (occurrence: TN)
  Receive Date: 20170904
  Receipt Date: 20190320
  Transmission Date: 20190417
  Serious: Yes (Hospitalization)
  Sender: FDA-Public Use
  Company Number: PHHY2016TN100794

PATIENT
  Age: 49 Year
  Sex: Female

DRUGS (1)
  1. TASIGNA [Suspect]
     Active Substance: NILOTINIB
     Indication: CHRONIC MYELOID LEUKAEMIA
     Dosage: 200 MG, BID (2X2 CAPSULES DAILY 400 MG)
     Route: 048
     Dates: start: 2011

REACTIONS (6)
  - Loss of consciousness [Recovering/Resolving]
  - Abdominal pain [Not Recovered/Not Resolved]
  - Vertigo [Recovered/Resolved]
  - Hyperhidrosis [Not Recovered/Not Resolved]
  - Eye irritation [Recovering/Resolving]
  - Eye irritation [Recovered/Resolved]

NARRATIVE: CASE EVENT DATE: 20160915
